FAERS Safety Report 13292847 (Version 1)
Quarter: 2017Q1

REPORT INFORMATION
  Report Type: Spontaneous
  Country: ES (occurrence: ES)
  Receive Date: 20170303
  Receipt Date: 20170303
  Transmission Date: 20170428
  Serious: Yes (Other)
  Sender: FDA-Public Use
  Company Number: ES-PFIZER INC-2017090933

PATIENT
  Age: 52 Year
  Sex: Female
  Weight: 45 kg

DRUGS (13)
  1. OMEPRAZOL CINFA [Concomitant]
     Indication: PROPHYLAXIS AGAINST GASTROINTESTINAL ULCER
     Dosage: 1 CAPSULE OF 20 MG IN THE MORNING
     Route: 065
     Dates: start: 20150215
  2. LORMETAZEPAM CINFA [Concomitant]
     Indication: INSOMNIA RELATED TO ANOTHER MENTAL CONDITION
     Dosage: 1 TABLET OF 2 MG AT NIGHT
     Route: 065
     Dates: start: 20161114
  3. VIGAMOX [Concomitant]
     Active Substance: MOXIFLOXACIN HYDROCHLORIDE
     Indication: CORNEAL TRANSPLANT
     Dosage: 5 MG, 3X/DAY
     Route: 065
     Dates: start: 20160704
  4. LYRICA [Suspect]
     Active Substance: PREGABALIN
     Indication: MAJOR DEPRESSION
     Dosage: 2 TABLETS OF 25 MG, ONE IN THE MORNING AND ONE AT NIGHT
     Route: 048
     Dates: start: 20170203, end: 20170212
  5. PARACETAMOL CINFA [Concomitant]
     Indication: PAIN
     Dosage: 650 MG, 4X/DAY
     Route: 065
     Dates: start: 20161017
  6. PRODERMA [Concomitant]
     Indication: BLEPHARITIS
     Dosage: 1 DAILY CAPSULE OF 50 MG AT LUNCH
     Route: 065
     Dates: start: 20150215
  7. RISFARMAL [Concomitant]
     Indication: CORNEAL TRANSPLANT
     Dosage: 1 MG, 3X/DAY
     Route: 065
     Dates: start: 20160704
  8. ORFIDAL [Concomitant]
     Active Substance: LORAZEPAM
     Indication: ANXIETY
     Dosage: 1 MG AS NEEDED FOR NERVOUSNESS
     Dates: start: 20161215
  9. TOBREX [Concomitant]
     Active Substance: TOBRAMYCIN
     Indication: EYE INFECTION BACTERIAL
     Dosage: 1 GTT, 3X/DAY
     Route: 065
  10. ZARELIS RETARD [Suspect]
     Active Substance: VENLAFAXINE HYDROCHLORIDE
     Indication: MAJOR DEPRESSION
     Dosage: 1 TABLET OF 150 MG AT BREAKFAST
     Route: 048
     Dates: start: 20161114
  11. IBUPROFENO CINFA [Concomitant]
     Indication: PAIN
     Dosage: 600 MG, 3X/DAY
     Route: 065
     Dates: start: 20141101
  12. MIRTAZAPINA RATIOPHARM [Suspect]
     Active Substance: MIRTAZAPINE
     Indication: MAJOR DEPRESSION
     Dosage: 15 MG, 1X/DAY
     Route: 048
     Dates: start: 20170203
  13. ALPHAGAN P [Concomitant]
     Active Substance: BRIMONIDINE TARTRATE
     Indication: CORNEAL TRANSPLANT
     Dosage: 2 MG, 2X/DAY
     Route: 065
     Dates: start: 20160704

REACTIONS (4)
  - Glossitis [Not Recovered/Not Resolved]
  - Product use issue [Unknown]
  - Inflammation [Not Recovered/Not Resolved]
  - Swelling face [Not Recovered/Not Resolved]

NARRATIVE: CASE EVENT DATE: 20170203
